FAERS Safety Report 14175978 (Version 1)
Quarter: 2017Q4

REPORT INFORMATION
  Report Type: Spontaneous
  Country: US (occurrence: None)
  Receive Date: 20171109
  Receipt Date: 20171109
  Transmission Date: 20180321
  Serious: Yes (Hospitalization)
  Sender: FDA-Public Use
  Company Number: None

PATIENT
  Age: 67 Year
  Sex: Male
  Weight: 180.53 kg

DRUGS (1)
  1. SOFOSBUVIR/VELPATASVIR [Suspect]
     Active Substance: SOFOSBUVIR\VELPATASVIR
     Indication: HEPATITIS C
     Dosage: 400/100 MG EVERY DAY PO
     Route: 048
     Dates: start: 20160920, end: 20161220

REACTIONS (6)
  - Back pain [None]
  - Atrial fibrillation [None]
  - Vision blurred [None]
  - Cardiac disorder [None]
  - Rash [None]
  - Pain in extremity [None]

NARRATIVE: CASE EVENT DATE: 20161011
